FAERS Safety Report 12037434 (Version 1)
Quarter: 2016Q1

REPORT INFORMATION
  Report Type: Spontaneous
  Country: US (occurrence: None)
  Receive Date: 20160205
  Receipt Date: 20160205
  Transmission Date: 20160526
  Serious: Yes (Death)
  Sender: FDA-Public Use
  Company Number: None

PATIENT
  Age: 58 Year
  Sex: Male
  Weight: 77.11 kg

DRUGS (9)
  1. METOPROLOL. [Concomitant]
     Active Substance: METOPROLOL
  2. BENZONATATE. [Concomitant]
     Active Substance: BENZONATATE
  3. LOVASTATIN. [Concomitant]
     Active Substance: LOVASTATIN
  4. FOLIC ACID. [Concomitant]
     Active Substance: FOLIC ACID
  5. THIAMINE. [Concomitant]
     Active Substance: THIAMINE
  6. ASPIRIN. [Concomitant]
     Active Substance: ASPIRIN
  7. GABAPENTIN. [Concomitant]
     Active Substance: GABAPENTIN
  8. OMEPRAZOLE. [Concomitant]
     Active Substance: OMEPRAZOLE
  9. VISMODEGIB 150 MG GENENTECH [Suspect]
     Active Substance: VISMODEGIB
     Indication: BASAL CELL CARCINOMA
     Route: 048
     Dates: start: 20141112, end: 20150411

REACTIONS (1)
  - Cardiac failure congestive [None]

NARRATIVE: CASE EVENT DATE: 20151022
